FAERS Safety Report 12707457 (Version 3)
Quarter: 2017Q2

REPORT INFORMATION
  Report Type: Spontaneous
  Country: SG (occurrence: SG)
  Receive Date: 20160901
  Receipt Date: 20170615
  Transmission Date: 20170830
  Serious: Yes (Other)
  Sender: FDA-Public Use
  Company Number: SG-009507513-1608SGP013282

PATIENT
  Age: 45 Year
  Sex: Male

DRUGS (2)
  1. MEXIUM [Concomitant]
     Dosage: UNK
  2. KEYTRUDA [Suspect]
     Active Substance: PEMBROLIZUMAB
     Indication: PANCREATIC CARCINOMA
     Dosage: CYCLE 1
     Dates: start: 201607, end: 201607

REACTIONS (3)
  - Cellulitis [Recovering/Resolving]
  - Stevens-Johnson syndrome [Recovered/Resolved]
  - Product use in unapproved indication [Unknown]

NARRATIVE: CASE EVENT DATE: 201607
